FAERS Safety Report 6996990-3 (Version None)
Quarter: 2010Q3

REPORT INFORMATION
  Report Type: 
  Country: None (occurrence: None)
  Receive Date: 20100918
  Receipt Date: 20090812
  Transmission Date: 20110219
  Serious: No
  Sender: FDA-Public Use
  Company Number: US-WYE-H10573509

PATIENT
  Sex: Male
  Weight: 171.61 kg

DRUGS (8)
  1. EFFEXOR XR [Suspect]
     Indication: DEPRESSION
     Dosage: 225 MG DAILY TAPERED TO 150 MG DAILY
     Route: 048
     Dates: start: 19990101, end: 20090701
  2. EFFEXOR XR [Suspect]
     Route: 048
     Dates: start: 20090701, end: 20090807
  3. EFFEXOR XR [Suspect]
     Route: 048
     Dates: start: 20090809, end: 20090801
  4. EFFEXOR XR [Suspect]
     Route: 048
     Dates: start: 20090801
  5. TRAMADOL [Concomitant]
     Indication: PAIN
     Dosage: DOSE UNKNOWN
     Route: 065
  6. LISINOPRIL [Concomitant]
     Indication: HYPERTENSION
     Dosage: DOSE UNKNOWN
     Route: 065
  7. LOVASTATIN [Concomitant]
     Indication: BLOOD CHOLESTEROL
     Dosage: DOSE UNKNOWN
     Route: 065
  8. RANITIDINE [Concomitant]
     Indication: GASTROOESOPHAGEAL REFLUX DISEASE
     Dosage: DOSE UNKNOWN
     Route: 065

REACTIONS (8)
  - AFFECT LABILITY [None]
  - CONFUSIONAL STATE [None]
  - DIZZINESS [None]
  - DRUG INEFFECTIVE [None]
  - DRUG WITHDRAWAL SYNDROME [None]
  - HYPERACUSIS [None]
  - INTENTIONAL DRUG MISUSE [None]
  - PHOTOPHOBIA [None]
